FAERS Safety Report 7864324-8 (Version None)
Quarter: 2011Q4

REPORT INFORMATION
  Report Type: 
  Country: None (occurrence: None)
  Receive Date: 20111028
  Receipt Date: 20111019
  Transmission Date: 20120403
  Serious: Yes (Other)
  Sender: FDA-Public Use
  Company Number: US-US-EMD SERONO, INC.-7091051

PATIENT
  Sex: Female
  Weight: 64 kg

DRUGS (4)
  1. UNSPECIFIED VITAMINS [Concomitant]
     Indication: FATIGUE
  2. NEXIUM [Concomitant]
     Indication: GASTROOESOPHAGEAL REFLUX DISEASE
  3. UNSPECIFIED VITAMINS [Concomitant]
     Indication: ASTHENIA
  4. REBIF [Suspect]
     Indication: MULTIPLE SCLEROSIS
     Route: 058
     Dates: start: 20110517

REACTIONS (2)
  - INJECTION SITE PAIN [None]
  - OESOPHAGEAL STENOSIS [None]
